FAERS Safety Report 4457165-5 (Version None)
Quarter: 2004Q3

REPORT INFORMATION
  Report Type: 
  Country: None (occurrence: None)
  Receive Date: 20040922
  Receipt Date: 20040908
  Transmission Date: 20050211
  Serious: Yes (Hospitalization, Other)
  Sender: FDA-Public Use
  Company Number: USA040361626

PATIENT
  Age: 77 Year
  Sex: Female

DRUGS (15)
  1. FORTEO [Suspect]
     Indication: OSTEOPOROSIS
     Dates: start: 20030514, end: 20040809
  2. ZYPREXA [Suspect]
     Indication: DEPRESSION
     Dosage: 5MG
  3. LACTULOSE [Concomitant]
  4. CELEBREX [Concomitant]
  5. FOLIC ACID [Concomitant]
  6. LISINOPRILL [Concomitant]
  7. HYDROCHLOROTHIAZIDE [Concomitant]
  8. SYNTHROID [Concomitant]
  9. DITROPAN [Concomitant]
  10. XANAX [Concomitant]
  11. MILK OF MAGNESIA TAB [Concomitant]
  12. COUMADIN [Concomitant]
  13. REMERON [Concomitant]
  14. EFFEXOR [Concomitant]
  15. ALLOPURINOL [Concomitant]

REACTIONS (6)
  - BLOOD CALCIUM INCREASED [None]
  - BONE DENSITY DECREASED [None]
  - HIP ARTHROPLASTY [None]
  - KNEE ARTHROPLASTY [None]
  - SKIN DISORDER [None]
  - SPINAL FUSION ACQUIRED [None]
